FAERS Safety Report 10743905 (Version 3)
Quarter: 2015Q1

REPORT INFORMATION
  Report Type: Spontaneous
  Country: IT (occurrence: IT)
  Receive Date: 20150128
  Receipt Date: 20150313
  Transmission Date: 20150721
  Serious: Yes (Hospitalization)
  Sender: FDA-Public Use
  Company Number: IT-BIOGENIDEC-2015BI010935

PATIENT
  Age: 29 Year
  Sex: Female
  Weight: 67 kg

DRUGS (3)
  1. YAZ [Concomitant]
     Active Substance: DROSPIRENONE\ETHINYL ESTRADIOL
     Indication: CONTRACEPTION
     Dates: start: 201304, end: 201404
  2. TYSABRI [Suspect]
     Active Substance: NATALIZUMAB
     Indication: RELAPSING-REMITTING MULTIPLE SCLEROSIS
     Route: 042
     Dates: start: 20130415, end: 20141103
  3. LYRICA [Concomitant]
     Active Substance: PREGABALIN
     Dates: end: 201410

REACTIONS (2)
  - Bronchopneumonia [Recovered/Resolved]
  - Oral candidiasis [Recovered/Resolved]

NARRATIVE: CASE EVENT DATE: 20141101
